FAERS Safety Report 4855544-5 (Version None)
Quarter: 2005Q4

REPORT INFORMATION
  Report Type: 
  Country: None (occurrence: None)
  Receive Date: 20051214
  Receipt Date: 20051208
  Transmission Date: 20060501
  Serious: Yes (Hospitalization)
  Sender: FDA-Public Use
  Company Number: HQWYE916609DEC05

PATIENT
  Age: 89 Year
  Sex: Female

DRUGS (9)
  1. CORDARONE [Suspect]
     Indication: ATRIAL FIBRILLATION
     Dosage: 100 MG 1X  PER 1 DAY, ORAL/FOR SEVERAL YEARS
     Route: 048
     Dates: end: 20051124
  2. STILNOX (ZOLPIDEM) [Concomitant]
  3. FUROSEMIDE [Concomitant]
  4. SINTROM [Concomitant]
  5. MOTILIUM [Concomitant]
  6. INEXIUM (ESOMEPRAZOLE) [Concomitant]
  7. ATARAX [Concomitant]
  8. AERIUS (DESLORATADINE) [Concomitant]
  9. PULMICORT [Concomitant]

REACTIONS (2)
  - ACUTE PULMONARY OEDEMA [None]
  - LUNG NEOPLASM [None]
